FAERS Safety Report 12967729 (Version 1)
Quarter: 2016Q4

REPORT INFORMATION
  Report Type: Spontaneous
  Country: US (occurrence: US)
  Receive Date: 20161123
  Receipt Date: 20161123
  Transmission Date: 20170207
  Serious: No
  Sender: FDA-Public Use
  Company Number: US-TEVA-636959USA

PATIENT
  Age: 3 Year
  Sex: Male

DRUGS (1)
  1. MUPIROCIN. [Suspect]
     Active Substance: MUPIROCIN
     Indication: BLISTER
     Dosage: 2%
     Route: 061

REACTIONS (2)
  - Blister [Unknown]
  - Drug ineffective [Unknown]
